FAERS Safety Report 12613243 (Version 2)
Quarter: 2016Q3

REPORT INFORMATION
  Report Type: Spontaneous
  Country: IT (occurrence: IT)
  Receive Date: 20160802
  Receipt Date: 20160805
  Transmission Date: 20161109
  Serious: Yes (Other)
  Sender: FDA-Public Use
  Company Number: IT-ACCORD-042767

PATIENT
  Sex: Female
  Weight: 70 kg

DRUGS (5)
  1. CONTRAMAL [Concomitant]
     Active Substance: TRAMADOL HYDROCHLORIDE
     Indication: PAIN
  2. GEMCITABINE/GEMCITABINE HYDROCHLORIDE [Suspect]
     Active Substance: GEMCITABINE\GEMCITABINE HYDROCHLORIDE
     Indication: BREAST CANCER STAGE IV
  3. GLUCOPHAGE [Concomitant]
     Active Substance: METFORMIN HYDROCHLORIDE
     Indication: DIABETES MELLITUS
  4. HERCEPTIN [Suspect]
     Active Substance: TRASTUZUMAB
     Indication: BREAST CANCER STAGE IV
     Route: 042
  5. CO-EFFERALGAN [Concomitant]
     Active Substance: ACETAMINOPHEN\CODEINE PHOSPHATE
     Indication: PAIN

REACTIONS (6)
  - Vertigo [Recovering/Resolving]
  - Dyspnoea exertional [Recovering/Resolving]
  - Cholangiectasis acquired [Recovering/Resolving]
  - Aphonia [Recovering/Resolving]
  - Arthralgia [Recovering/Resolving]
  - Pleural effusion [Recovering/Resolving]
